FAERS Safety Report 10425001 (Version 1)
Quarter: 2014Q3

REPORT INFORMATION
  Report Type: Spontaneous
  Country: HU (occurrence: HU)
  Receive Date: 20140902
  Receipt Date: 20140902
  Transmission Date: 20150326
  Serious: Yes (Other)
  Sender: FDA-Public Use
  Company Number: PHHY2014HU110642

PATIENT
  Age: 7 Year
  Sex: Male

DRUGS (2)
  1. RITALIN [Suspect]
     Active Substance: METHYLPHENIDATE HYDROCHLORIDE
     Indication: ATTENTION DEFICIT/HYPERACTIVITY DISORDER
     Dosage: 10 MG IN THE MORNING AND 05 MG AT MIDDAY
     Route: 048
     Dates: start: 201207, end: 201308
  2. CEFPROZIL. [Concomitant]
     Active Substance: CEFPROZIL
     Indication: UPPER RESPIRATORY TRACT INFECTION
     Dosage: UNK UKN, UNK

REACTIONS (1)
  - Alopecia areata [Not Recovered/Not Resolved]

NARRATIVE: CASE EVENT DATE: 20130108
